FAERS Safety Report 17264054 (Version 3)
Quarter: 2020Q1

REPORT INFORMATION
  Report Type: Spontaneous
  Country: US (occurrence: US)
  Receive Date: 20200113
  Receipt Date: 20200313
  Transmission Date: 20200409
  Serious: Yes (Death)
  Sender: FDA-Public Use
  Company Number: US-PFIZER INC-2020012261

PATIENT
  Age: 49 Year
  Sex: Male

DRUGS (14)
  1. TACROLIMUS. [Suspect]
     Active Substance: TACROLIMUS
     Indication: IMMUNOSUPPRESSANT DRUG THERAPY
     Dosage: UNK
  2. FLUCONAZOLE. [Suspect]
     Active Substance: FLUCONAZOLE
     Indication: DEBRIDEMENT
  3. AMPHOTERICIN B. [Suspect]
     Active Substance: AMPHOTERICIN B
     Indication: ANTIFUNGAL TREATMENT
     Dosage: 6 MG/KG, DAILY
     Route: 042
  4. FLUCONAZOLE. [Suspect]
     Active Substance: FLUCONAZOLE
     Indication: ANTIFUNGAL PROPHYLAXIS
     Dosage: 400 MG, DAILY
  5. LINEZOLID. [Suspect]
     Active Substance: LINEZOLID
     Indication: ENTEROCOCCAL INFECTION
  6. LINEZOLID. [Suspect]
     Active Substance: LINEZOLID
     Indication: MUCORMYCOSIS
     Dosage: UNK
     Route: 042
  7. MICAFUNGIN. [Suspect]
     Active Substance: MICAFUNGIN SODIUM
     Indication: NECROSIS
     Dosage: 100 MG, DAILY
     Route: 042
  8. MYCOPHENOLIC ACID. [Suspect]
     Active Substance: MYCOPHENOLIC ACID
     Indication: IMMUNOSUPPRESSANT DRUG THERAPY
     Dosage: UNK
  9. POSACONAZOLE [Suspect]
     Active Substance: POSACONAZOLE
     Indication: ANTIFUNGAL TREATMENT
     Dosage: 300 MG, DAILY
     Route: 042
  10. MEROPENEM. [Suspect]
     Active Substance: MEROPENEM
     Indication: DEBRIDEMENT
     Dosage: 100 MG, DAILY
     Route: 042
  11. MEROPENEM. [Suspect]
     Active Substance: MEROPENEM
     Indication: NECROSIS
  12. ANTITHYMOCYTE IMMUNOGLOBULIN [Suspect]
     Active Substance: THYMOCYTE IMMUNE GLOBULIN NOS
     Indication: IMMUNOSUPPRESSANT DRUG THERAPY
     Dosage: UNK (THREE DOSES)
  13. PREDNISONE. [Suspect]
     Active Substance: PREDNISONE
     Indication: IMMUNOSUPPRESSION
     Dosage: UNK (TAPER)
  14. DOPAMINE [Concomitant]
     Active Substance: DOPAMINE HYDROCHLORIDE
     Indication: HYPOVOLAEMIC SHOCK
     Dosage: UNK
     Route: 042

REACTIONS (3)
  - Postoperative wound infection [Fatal]
  - Drug ineffective [Fatal]
  - Mucormycosis [Fatal]
